FAERS Safety Report 9009915 (Version 1)
Quarter: 2013Q1

REPORT INFORMATION
  Report Type: Spontaneous
  Country: US (occurrence: US)
  Receive Date: 20130112
  Receipt Date: 20130112
  Transmission Date: 20140127
  Serious: Yes (Other)
  Sender: FDA-Public Use
  Company Number: US-009507513-1301USA003758

PATIENT
  Age: 29 Year
  Sex: Female

DRUGS (4)
  1. MONTELUKAST SODIUM [Suspect]
     Indication: HYPERTENSION
  2. MONTELUKAST SODIUM [Suspect]
     Indication: MIGRAINE
  3. VERAPAMIL [Suspect]
  4. CALAN [Suspect]
     Dosage: 180 MG, QD
     Route: 048

REACTIONS (5)
  - Stillbirth [Unknown]
  - Pain [Unknown]
  - Headache [Unknown]
  - Anaphylactic shock [Unknown]
  - Anaemia [Unknown]
